FAERS Safety Report 26067813 (Version 3)
Quarter: 2025Q4

REPORT INFORMATION
  Report Type: Spontaneous
  Country: KR (occurrence: KR)
  Receive Date: 20251120
  Receipt Date: 20251210
  Transmission Date: 20260118
  Serious: Yes (Life-Threatening, Hospitalization, Other)
  Sender: CELLTRION
  Company Number: KR-CELLTRION INC.-2025KR041952

PATIENT

DRUGS (8)
  1. TRUXIMA [Suspect]
     Active Substance: RITUXIMAB-ABBS
     Indication: Diffuse large B-cell lymphoma
     Dosage: 375MG/M2 Q3WEEKS IV
     Route: 042
     Dates: start: 20250922, end: 20251104
  2. TRUXIMA [Suspect]
     Active Substance: RITUXIMAB-ABBS
     Dosage: 500 MG (375MG/M2)
     Dates: start: 20250922, end: 20251104
  3. TRUXIMA [Suspect]
     Active Substance: RITUXIMAB-ABBS
     Dosage: 100 MG (375MG/M2)
     Dates: start: 20250922, end: 20251104
  4. ZANUBRUTINIB [Suspect]
     Active Substance: ZANUBRUTINIB
     Indication: Diffuse large B-cell lymphoma
     Dosage: 80MG 2C QD PO
     Route: 048
     Dates: start: 20250922, end: 20251104
  5. CARBOPLATIN\ETOPOSIDE\IFOSFAMIDE [Suspect]
     Active Substance: CARBOPLATIN\ETOPOSIDE\IFOSFAMIDE
     Indication: Diffuse large B-cell lymphoma
     Dosage: IFOSFAMIDE: 1200MG/M2
     Dates: start: 20250922, end: 20251104
  6. CARBOPLATIN\ETOPOSIDE\IFOSFAMIDE [Suspect]
     Active Substance: CARBOPLATIN\ETOPOSIDE\IFOSFAMIDE
     Dosage: CARBOPLATIN: 4AUC
     Dates: start: 20250922, end: 20251104
  7. CARBOPLATIN\ETOPOSIDE\IFOSFAMIDE [Suspect]
     Active Substance: CARBOPLATIN\ETOPOSIDE\IFOSFAMIDE
     Dosage: ETOPOSIDE: 75 MG/M2
     Dates: start: 20250922, end: 20251104
  8. FREAMINE [ALANINE;ARGININE HYDROCHLORIDE;CYSTEINE HYDROCHLORIDE;GLYCIN [Concomitant]
     Indication: Prophylaxis
     Dosage: 1 BAG QD IV CONTINUOUS
     Route: 042
     Dates: start: 20251114, end: 20251114

REACTIONS (5)
  - Neutrophil count decreased [Recovered/Resolved]
  - Platelet count decreased [Recovered/Resolved]
  - Muscular weakness [Recovered/Resolved]
  - Anaemia [Recovered/Resolved]
  - Product use issue [Unknown]

NARRATIVE: CASE EVENT DATE: 20251114
